FAERS Safety Report 14498220 (Version 1)
Quarter: 2018Q1

REPORT INFORMATION
  Report Type: Spontaneous
  Country: US (occurrence: US)
  Receive Date: 20180206
  Receipt Date: 20180206
  Transmission Date: 20180509
  Serious: Yes (Other)
  Sender: FDA-Public Use
  Company Number: None

PATIENT
  Sex: Male
  Weight: 81 kg

DRUGS (8)
  1. XIFAXAN [Concomitant]
     Active Substance: RIFAXIMIN
  2. VITAMIN D2 [Concomitant]
     Active Substance: ERGOCALCIFEROL
  3. OPSUMIT [Suspect]
     Active Substance: MACITENTAN
     Indication: HYPERTENSION
     Dosage: ?          QUANTITY:1 TABLET(S);?
     Route: 048
     Dates: start: 20180124, end: 20180205
  4. SILDENAFIL. [Concomitant]
     Active Substance: SILDENAFIL
  5. ZINC. [Concomitant]
     Active Substance: ZINC
  6. URSODIOL. [Concomitant]
     Active Substance: URSODIOL
  7. LACTULOSE. [Concomitant]
     Active Substance: LACTULOSE
  8. VITAMIN B-12 COMPLEX [Concomitant]

REACTIONS (3)
  - General physical health deterioration [None]
  - Laboratory test abnormal [None]
  - Renal disorder [None]

NARRATIVE: CASE EVENT DATE: 20180205
